FAERS Safety Report 13470212 (Version 1)
Quarter: 2017Q2

REPORT INFORMATION
  Report Type: Spontaneous
  Country: US (occurrence: US)
  Receive Date: 20170421
  Receipt Date: 20170421
  Transmission Date: 20170830
  Serious: No
  Sender: FDA-Public Use
  Company Number: None

PATIENT
  Age: 53 Year
  Sex: Male

DRUGS (1)
  1. ENBREL [Suspect]
     Active Substance: ETANERCEPT
     Indication: ANKYLOSING SPONDYLITIS
     Dosage: 50 MG ONCE PER WEEK
     Route: 058
     Dates: start: 20161012, end: 20170403

REACTIONS (2)
  - Malaise [None]
  - Immunosuppression [None]

NARRATIVE: CASE EVENT DATE: 20170403
